FAERS Safety Report 5623504-2 (Version None)
Quarter: 2008Q1

REPORT INFORMATION
  Report Type: 
  Country: None (occurrence: None)
  Receive Date: 20080212
  Receipt Date: 20080201
  Transmission Date: 20080703
  Serious: Yes (Other)
  Sender: FDA-Public Use
  Company Number: US-ELI_LILLY_AND_COMPANY-US200802000235

PATIENT
  Sex: Female

DRUGS (1)
  1. HUMULIN N [Suspect]
     Dosage: UNK, UNK

REACTIONS (3)
  - PAIN [None]
  - SKIN DISCOLOURATION [None]
  - TOE AMPUTATION [None]
